FAERS Safety Report 8497924-5 (Version None)
Quarter: 2012Q3

REPORT INFORMATION
  Report Type: 
  Country: None (occurrence: None)
  Receive Date: 20120709
  Receipt Date: 20120616
  Transmission Date: 20120928
  Serious: No
  Sender: FDA-Public Use
  Company Number: US-AMGEN-USASP2012031121

PATIENT
  Age: 57 Year
  Sex: Female

DRUGS (1)
  1. ENBREL [Suspect]
     Indication: RHEUMATOID ARTHRITIS
     Dosage: 50 MG, QWK
     Dates: start: 20120325

REACTIONS (4)
  - LOWER RESPIRATORY TRACT INFECTION [None]
  - RHINORRHOEA [None]
  - PRODUCTIVE COUGH [None]
  - NASOPHARYNGITIS [None]
